FAERS Safety Report 23139805 (Version 1)
Quarter: 2023Q4

REPORT INFORMATION
  Report Type: Spontaneous
  Country: US (occurrence: US)
  Receive Date: 20231102
  Receipt Date: 20231102
  Transmission Date: 20240110
  Serious: No
  Sender: FDA-Public Use
  Company Number: US-Covis Pharma GmbH-2023COV01763

PATIENT
  Sex: Male

DRUGS (1)
  1. OMNARIS [Suspect]
     Active Substance: CICLESONIDE
     Indication: Sinusitis
     Route: 045

REACTIONS (1)
  - Off label use [Not Recovered/Not Resolved]
